FAERS Safety Report 14492523 (Version 1)
Quarter: 2018Q1

REPORT INFORMATION
  Report Type: Spontaneous
  Country: US (occurrence: US)
  Receive Date: 20180205
  Receipt Date: 20180205
  Transmission Date: 20180509
  Serious: Yes (Other)
  Sender: FDA-Public Use
  Company Number: None

PATIENT

DRUGS (1)
  1. GADOBENATE DIMEGLUMINE [Suspect]
     Active Substance: GADOBENATE DIMEGLUMINE

REACTIONS (5)
  - Dyspnoea [None]
  - Infusion site erythema [None]
  - Infusion site rash [None]
  - Sneezing [None]
  - Chest discomfort [None]
